FAERS Safety Report 4752382-9 (Version None)
Quarter: 2005Q3

REPORT INFORMATION
  Report Type: 
  Country: None (occurrence: None)
  Receive Date: 20050825
  Receipt Date: 20050817
  Transmission Date: 20060218
  Serious: Yes (Other)
  Sender: FDA-Public Use
  Company Number: PHNR2005AU01273

PATIENT
  Age: 82 Year
  Sex: Male
  Weight: 83 kg

DRUGS (1)
  1. ZOMETA [Suspect]
     Dosage: 4.0 MG. DAILY
     Route: 042

REACTIONS (2)
  - AMNESIA [None]
  - SEDATION [None]
